FAERS Safety Report 5845263-0 (Version None)
Quarter: 2008Q3

REPORT INFORMATION
  Report Type: 
  Country: None (occurrence: None)
  Receive Date: 20080814
  Receipt Date: 20080812
  Transmission Date: 20090109
  Serious: Yes (Hospitalization)
  Sender: FDA-Public Use
  Company Number: JP-EISAI MEDICAL RESEARCH-E2090-00524-SPO-JP

PATIENT
  Age: 66 Year
  Sex: Male

DRUGS (3)
  1. EXCEGRAN [Suspect]
     Indication: EPILEPSY
     Route: 048
     Dates: start: 20080703, end: 20080713
  2. EXCEGRAN [Suspect]
     Route: 048
     Dates: start: 20080714, end: 20080723
  3. EXCEGRAN [Suspect]
     Route: 048
     Dates: start: 20080724, end: 20080805

REACTIONS (1)
  - DRUG RASH WITH EOSINOPHILIA AND SYSTEMIC SYMPTOMS [None]
